FAERS Safety Report 19847035 (Version 1)
Quarter: 2021Q3

REPORT INFORMATION
  Report Type: Report from Study
  Country: CA (occurrence: CA)
  Receive Date: 20210917
  Receipt Date: 20210917
  Transmission Date: 20211014
  Serious: Yes (Hospitalization, Other)
  Sender: FDA-Public Use
  Company Number: CA-PFIZER INC-2019394794

PATIENT
  Age: 57 Year
  Sex: Female
  Weight: 88 kg

DRUGS (12)
  1. ACTEMRA [Suspect]
     Active Substance: TOCILIZUMAB
     Dosage: 304 MG
     Dates: start: 20150317
  2. METHOTREXATE SODIUM. [Suspect]
     Active Substance: METHOTREXATE SODIUM
     Dosage: UNK, WEEKLY
     Route: 065
     Dates: end: 201501
  3. CELEBREX [Concomitant]
     Active Substance: CELECOXIB
     Dosage: UNK
  4. ACTEMRA [Suspect]
     Active Substance: TOCILIZUMAB
     Indication: RHEUMATOID ARTHRITIS
     Dosage: 352 MG, 1 EVERY 4 WEEKS
     Route: 042
     Dates: start: 20141125
  5. ACTEMRA [Suspect]
     Active Substance: TOCILIZUMAB
     Dosage: UNK
     Dates: start: 20150217
  6. ACTEMRA [Suspect]
     Active Substance: TOCILIZUMAB
     Dosage: UNK
     Dates: start: 20151110
  7. ACTEMRA [Suspect]
     Active Substance: TOCILIZUMAB
     Indication: RHEUMATOID ARTHRITIS
     Dosage: 640 MG, 1 EVERY 4 WEEKS
     Route: 042
     Dates: start: 20160308
  8. ACTEMRA [Suspect]
     Active Substance: TOCILIZUMAB
     Dosage: 540 MG, 1 EVERY 4 WEEKS
     Route: 042
  9. ACTEMRA [Suspect]
     Active Substance: TOCILIZUMAB
     Dosage: 640 MG
     Dates: start: 20150512
  10. ATIVAN [Concomitant]
     Active Substance: LORAZEPAM
     Dosage: 0.5 MG, 2X/DAY
     Route: 065
  11. ACTEMRA [Suspect]
     Active Substance: TOCILIZUMAB
     Dosage: 304 MG, 1 EVERY 4 WEEKS
     Route: 042
  12. ACTEMRA [Suspect]
     Active Substance: TOCILIZUMAB
     Dosage: 640 MG, 1 EVERY 4 WEEKS
     Route: 042

REACTIONS (6)
  - Weight decreased [Unknown]
  - Weight decreased [Recovered/Resolved]
  - Rib fracture [Unknown]
  - Blood test abnormal [Unknown]
  - Weight increased [Unknown]
  - Osteoporosis [Unknown]

NARRATIVE: CASE EVENT DATE: 20150509
